FAERS Safety Report 12195723 (Version 4)
Quarter: 2016Q2

REPORT INFORMATION
  Report Type: Spontaneous
  Country: IT (occurrence: IT)
  Receive Date: 20160321
  Receipt Date: 20160401
  Transmission Date: 20160815
  Serious: Yes (Other)
  Sender: FDA-Public Use
  Company Number: IT-PFIZER INC-2016161228

PATIENT
  Age: 54 Year
  Sex: Female

DRUGS (4)
  1. EUTIMIL [Suspect]
     Active Substance: PAROXETINE HYDROCHLORIDE
     Indication: INTENTIONAL SELF-INJURY
     Dosage: 4 DF, TOTAL
     Route: 048
     Dates: start: 20160203, end: 20160203
  2. DEPAMAG [Concomitant]
     Active Substance: VALPROATE MAGNESIUM
     Dosage: UNK
     Route: 048
  3. ALPRAZOLAM. [Suspect]
     Active Substance: ALPRAZOLAM
     Indication: INTENTIONAL SELF-INJURY
     Dosage: 10 GTT, TOTAL
     Route: 048
     Dates: start: 20160203, end: 20160203
  4. TRIATEC [Suspect]
     Active Substance: RAMIPRIL
     Indication: INTENTIONAL SELF-INJURY
     Dosage: 4 DF, TOTAL
     Route: 048
     Dates: start: 20160203, end: 20160203

REACTIONS (4)
  - Intentional overdose [Recovering/Resolving]
  - Intentional self-injury [Recovering/Resolving]
  - Sopor [Recovering/Resolving]
  - Drug abuse [Recovering/Resolving]

NARRATIVE: CASE EVENT DATE: 20160203
